FAERS Safety Report 9687407 (Version 2)
Quarter: 2013Q4

REPORT INFORMATION
  Report Type: Spontaneous
  Country: BE (occurrence: BE)
  Receive Date: 20131114
  Receipt Date: 20131114
  Transmission Date: 20140711
  Serious: Yes (Death)
  Sender: FDA-Public Use
  Company Number: BE-BAXTER-2013BAX042805

PATIENT
  Sex: Female

DRUGS (2)
  1. DIANEAL PD4 GLUCOSE 1,36 % (13,6 MG/ML), SOLUTION POUR DIALYSE P?RITON [Suspect]
     Indication: PERITONEAL DIALYSIS
     Route: 033
     Dates: end: 20131025
  2. EXTRANEAL, SOLUTION POUR DIALYSE P?RITON?ALE [Suspect]
     Indication: PERITONEAL DIALYSIS
     Route: 033
     Dates: end: 20131025

REACTIONS (1)
  - Ischaemic stroke [Fatal]
